FAERS Safety Report 23692581 (Version 1)
Quarter: 2024Q2

REPORT INFORMATION
  Report Type: Spontaneous
  Country: VN (occurrence: VN)
  Receive Date: 20240401
  Receipt Date: 20240401
  Transmission Date: 20240716
  Serious: Yes (Hospitalization)
  Sender: FDA-Public Use
  Company Number: VN-DSJP-DSJ-2024-114158

PATIENT
  Age: 77 Year
  Sex: Female

DRUGS (3)
  1. EDOXABAN [Suspect]
     Active Substance: EDOXABAN
     Indication: Atrial fibrillation
     Dosage: 1 DF, QD (1 TABLET PER DAY)
     Route: 048
     Dates: start: 20240306, end: 20240306
  2. CHOLINE ALFOSCERAT [Concomitant]
     Indication: Product used for unknown indication
     Dosage: UNK
     Route: 065
  3. CEREBROLYSIN [Concomitant]
     Active Substance: CEREBROLYSIN
     Indication: Product used for unknown indication
     Dosage: UNK
     Route: 065

REACTIONS (1)
  - Hypersensitivity [Recovered/Resolved]

NARRATIVE: CASE EVENT DATE: 20240306
